FAERS Safety Report 23169738 (Version 1)
Quarter: 2023Q4

REPORT INFORMATION
  Report Type: Spontaneous
  Country: KR (occurrence: KR)
  Receive Date: 20231110
  Receipt Date: 20231110
  Transmission Date: 20240110
  Serious: Yes (Hospitalization, Other)
  Sender: FDA-Public Use
  Company Number: KR-SAMSUNG BIOEPIS-SB-2023-29646

PATIENT
  Age: 53 Year
  Sex: Female
  Weight: 52.8 kg

DRUGS (2)
  1. TRASTUZUMAB [Suspect]
     Active Substance: TRASTUZUMAB
     Indication: Breast cancer female
     Dosage: DOSE: 308.4 D1
     Route: 042
     Dates: start: 20230816, end: 20231018
  2. ERIBULIN [Suspect]
     Active Substance: ERIBULIN
     Indication: Breast cancer female
     Dosage: D1, D8
     Route: 042
     Dates: start: 20230816, end: 20231025

REACTIONS (2)
  - Mental status changes [Recovering/Resolving]
  - Metastases to central nervous system [Unknown]

NARRATIVE: CASE EVENT DATE: 20231101
